FAERS Safety Report 11892160 (Version 1)
Quarter: 2016Q1

REPORT INFORMATION
  Report Type: Spontaneous
  Country: US (occurrence: None)
  Receive Date: 20160105
  Receipt Date: 20160105
  Transmission Date: 20160526
  Serious: No
  Sender: FDA-Public Use
  Company Number: None

PATIENT
  Age: 81 Year
  Sex: Female

DRUGS (7)
  1. OXYCODONE [Concomitant]
     Active Substance: OXYCODONE
  2. COUMADIN [Concomitant]
     Active Substance: WARFARIN SODIUM
  3. BETAMETHASONE. [Concomitant]
     Active Substance: BETAMETHASONE
  4. APAP/CODEINE [Concomitant]
     Active Substance: ACETAMINOPHEN\CODEINE PHOSPHATE
  5. METOPROLOL. [Concomitant]
     Active Substance: METOPROLOL
  6. VALACYCLOVIR [Concomitant]
     Active Substance: VALACYCLOVIR HYDROCHLORIDE
  7. BOSULIF [Suspect]
     Active Substance: BOSUTINIB MONOHYDRATE
     Indication: CHRONIC LEUKAEMIA
     Route: 048

REACTIONS (1)
  - Pollakiuria [None]

NARRATIVE: CASE EVENT DATE: 201601
